FAERS Safety Report 10732498 (Version 14)
Quarter: 2018Q2

REPORT INFORMATION
  Report Type: Report from Study
  Country: CA (occurrence: CA)
  Receive Date: 20150123
  Receipt Date: 20180426
  Transmission Date: 20180711
  Serious: Yes (Death, Hospitalization, Other)
  Sender: FDA-Public Use
  Company Number: PHHY2015CA008331

PATIENT
  Age: 67 Year
  Sex: Male

DRUGS (6)
  1. DEXAMETHASONE. [Concomitant]
     Active Substance: DEXAMETHASONE
     Indication: PRODUCT USED FOR UNKNOWN INDICATION
     Dosage: 20 MG, QD
     Route: 065
     Dates: start: 2017
  2. AMLODIPINE [Suspect]
     Active Substance: AMLODIPINE BESYLATE
     Indication: PRODUCT USED FOR UNKNOWN INDICATION
     Route: 065
  3. ALLOPURINOL. [Concomitant]
     Active Substance: ALLOPURINOL
     Indication: PRODUCT USED FOR UNKNOWN INDICATION
     Route: 065
  4. LENALIDOMIDE [Concomitant]
     Active Substance: LENALIDOMIDE
     Indication: PRODUCT USED FOR UNKNOWN INDICATION
     Dosage: 10 MG, (FOR 21 DAYS THEN 7 DAYS OFF)
     Route: 065
     Dates: start: 2017
  5. SANDOSTATIN LAR DEPOT [Suspect]
     Active Substance: OCTREOTIDE ACETATE
     Indication: METASTATIC CARCINOID TUMOUR
     Dosage: 20 MG, TIW (EVERY 3 WEEKS )
     Route: 030
     Dates: start: 200601, end: 20180306
  6. METOPROLOL. [Suspect]
     Active Substance: METOPROLOL
     Indication: PRODUCT USED FOR UNKNOWN INDICATION
     Dosage: 100 MG, BID
     Route: 048

REACTIONS (18)
  - Blood pressure systolic increased [Unknown]
  - Muscular weakness [Unknown]
  - Balance disorder [Unknown]
  - Injection site haematoma [Unknown]
  - Back pain [Unknown]
  - Dyspnoea [Unknown]
  - Plasma cell myeloma [Fatal]
  - Second primary malignancy [Unknown]
  - Malignant melanoma [Not Recovered/Not Resolved]
  - Herpes zoster [Unknown]
  - Hypotension [Unknown]
  - Pneumonia [Unknown]
  - Dizziness [Unknown]
  - Blood pressure increased [Unknown]
  - Rash generalised [Unknown]
  - Fall [Unknown]
  - Dizziness postural [Unknown]
  - Inappropriate schedule of drug administration [Unknown]

NARRATIVE: CASE EVENT DATE: 200601
